FAERS Safety Report 24958917 (Version 1)
Quarter: 2025Q1

REPORT INFORMATION
  Report Type: Other
  Country: IT (occurrence: IT)
  Receive Date: 20250212
  Receipt Date: 20250212
  Transmission Date: 20250409
  Serious: Yes (Death, Other)
  Sender: ESJAY PHARMA
  Company Number: IT-ESJAY PHARMA-000031

PATIENT
  Age: 70 Year
  Sex: Male

DRUGS (1)
  1. FUROSEMIDE [Suspect]
     Active Substance: FUROSEMIDE
     Indication: Diuretic therapy

REACTIONS (3)
  - Drug ineffective [Fatal]
  - Hepatic function abnormal [Fatal]
  - Renal impairment [Fatal]
